FAERS Safety Report 6229699-4 (Version None)
Quarter: 2009Q2

REPORT INFORMATION
  Report Type: 
  Country: None (occurrence: None)
  Receive Date: 20090615
  Receipt Date: 20090604
  Transmission Date: 20091009
  Serious: Yes (Hospitalization, Other)
  Sender: FDA-Public Use
  Company Number: PL-JNJFOC-20090602359

PATIENT
  Sex: Female
  Weight: 50 kg

DRUGS (5)
  1. REMICADE [Suspect]
     Indication: DRUG USE FOR UNKNOWN INDICATION
     Dosage: (3RD INFUSION)
     Route: 042
  2. METYPRED [Concomitant]
     Indication: CROHN'S DISEASE
  3. POLPRAZOL [Concomitant]
     Indication: DYSPEPSIA
  4. PROTIFAR [Concomitant]
  5. HYDROCORTISONE [Concomitant]
     Indication: PREMEDICATION

REACTIONS (8)
  - ALANINE AMINOTRANSFERASE INCREASED [None]
  - ASPARTATE AMINOTRANSFERASE INCREASED [None]
  - BLOOD PRESSURE DECREASED [None]
  - DIARRHOEA [None]
  - GENERALISED ERYTHEMA [None]
  - HYPOTHERMIA [None]
  - INFUSION RELATED REACTION [None]
  - VOMITING [None]
